FAERS Safety Report 12884012 (Version 3)
Quarter: 2017Q2

REPORT INFORMATION
  Report Type: Spontaneous
  Country: JP (occurrence: JP)
  Receive Date: 20161026
  Receipt Date: 20170517
  Transmission Date: 20170830
  Serious: Yes (Death, Other)
  Sender: FDA-Public Use
  Company Number: JP-CELGENEUS-JPN-2016104195

PATIENT
  Age: 85 Year
  Sex: Female

DRUGS (4)
  1. LENADEX [Suspect]
     Active Substance: DEXAMETHASONE ACETATE
     Indication: PLASMA CELL MYELOMA
  2. BORTEZOMIB [Suspect]
     Active Substance: BORTEZOMIB
     Indication: PLASMA CELL MYELOMA
     Route: 065
     Dates: start: 20160711, end: 2016
  3. REVLIMID [Suspect]
     Active Substance: LENALIDOMIDE
     Indication: PLASMA CELL MYELOMA
     Dosage: 10 MILLIGRAM
     Route: 048
     Dates: start: 20160824, end: 20160902
  4. LENADEX [Suspect]
     Active Substance: DEXAMETHASONE ACETATE
     Indication: PLASMA CELL MYELOMA
     Route: 048
     Dates: start: 20160711, end: 20160902

REACTIONS (13)
  - Urinary retention [Unknown]
  - Decreased appetite [Unknown]
  - Hyperkalaemia [Unknown]
  - Vomiting [Unknown]
  - Lactic acidosis [Unknown]
  - Hepatic enzyme increased [Unknown]
  - Multiple organ dysfunction syndrome [Fatal]
  - Klebsiella infection [Unknown]
  - Nausea [Unknown]
  - Renal impairment [Unknown]
  - Pyuria [Not Recovered/Not Resolved]
  - Plasma cell myeloma [Fatal]
  - Sepsis [Unknown]

NARRATIVE: CASE EVENT DATE: 2016
